FAERS Safety Report 12743807 (Version 1)
Quarter: 2016Q3

REPORT INFORMATION
  Report Type: Spontaneous
  Country: JP (occurrence: JP)
  Receive Date: 20160914
  Receipt Date: 20160914
  Transmission Date: 20161109
  Serious: Yes (Other)
  Sender: FDA-Public Use
  Company Number: GXJP2016JP001414

PATIENT
  Age: 83 Year
  Sex: Female

DRUGS (2)
  1. RIFAMPICIN CAPSULES [Suspect]
     Active Substance: RIFAMPIN
     Indication: WOUND INFECTION STAPHYLOCOCCAL
     Route: 048
  2. SULFAMETHOXAZOLE AND TRIMETHOPRIM [Suspect]
     Active Substance: SULFAMETHOXAZOLE\TRIMETHOPRIM
     Indication: WOUND INFECTION STAPHYLOCOCCAL
     Route: 065

REACTIONS (3)
  - Nausea [Unknown]
  - Urinary bladder haemorrhage [Unknown]
  - Vomiting [Unknown]
